FAERS Safety Report 19628066 (Version 2)
Quarter: 2021Q3

REPORT INFORMATION
  Report Type: Spontaneous
  Country: US (occurrence: US)
  Receive Date: 20210728
  Receipt Date: 20210902
  Transmission Date: 20211014
  Serious: Yes (Hospitalization, Other)
  Sender: FDA-Public Use
  Company Number: US-PFIZER INC-2021887489

PATIENT
  Age: 75 Year
  Sex: Female
  Weight: 61.22 kg

DRUGS (2)
  1. IBRANCE [Suspect]
     Active Substance: PALBOCICLIB
     Indication: BREAST CANCER METASTATIC
     Dosage: 126 MG, CYCLIC: (ONE TABLET IN A DAY FOR THREE WEEKS AND THEN OFF FOR A WEEK)
     Dates: start: 2021
  2. FASLODEX [Suspect]
     Active Substance: FULVESTRANT

REACTIONS (17)
  - Oropharyngeal discomfort [Unknown]
  - Chest pain [Recovered/Resolved with Sequelae]
  - Chest discomfort [Unknown]
  - Coronary artery stenosis [Unknown]
  - Fibrin D dimer increased [Unknown]
  - Nausea [Unknown]
  - Limb discomfort [Unknown]
  - Dizziness [Unknown]
  - Pulmonary embolism [Unknown]
  - Myocarditis [Unknown]
  - Troponin increased [Unknown]
  - Pain in extremity [Not Recovered/Not Resolved]
  - White blood cell count decreased [Recovering/Resolving]
  - Platelet count decreased [Unknown]
  - Inflammation [Unknown]
  - Musculoskeletal discomfort [Unknown]
  - Product prescribing error [Unknown]

NARRATIVE: CASE EVENT DATE: 2021
